FAERS Safety Report 22048463 (Version 1)
Quarter: 2023Q1

REPORT INFORMATION
  Report Type: Spontaneous
  Country: US (occurrence: US)
  Receive Date: 20230301
  Receipt Date: 20230301
  Transmission Date: 20230418
  Serious: Yes (Hospitalization, Other)
  Sender: FDA-Public Use
  Company Number: US-Accord-302466

PATIENT
  Sex: Female

DRUGS (1)
  1. CLONAZEPAM [Suspect]
     Active Substance: CLONAZEPAM
     Indication: Epilepsy

REACTIONS (6)
  - Withdrawal syndrome [Unknown]
  - Wrong technique in product usage process [Unknown]
  - Epilepsy [Unknown]
  - Vertigo [Recovered/Resolved]
  - Feeling abnormal [Unknown]
  - Confusional state [Unknown]
